FAERS Safety Report 6388576-9 (Version None)
Quarter: 2009Q3

REPORT INFORMATION
  Report Type: 
  Country: None (occurrence: None)
  Receive Date: 20090930
  Receipt Date: 20090921
  Transmission Date: 20100115
  Serious: Yes (Disabling)
  Sender: FDA-Public Use
  Company Number: OSCN-NO-0909L-0434

PATIENT
  Age: 20 Year
  Sex: Male

DRUGS (7)
  1. OMNISCAN [Suspect]
     Indication: DRUG USE FOR UNKNOWN INDICATION
     Dosage: SEE IMAGE
     Dates: start: 20000822, end: 20000822
  2. OMNISCAN [Suspect]
     Indication: DRUG USE FOR UNKNOWN INDICATION
     Dosage: SEE IMAGE
     Dates: start: 20000921, end: 20000921
  3. OMNISCAN [Suspect]
     Indication: DRUG USE FOR UNKNOWN INDICATION
     Dosage: SEE IMAGE
     Dates: start: 20001123, end: 20001123
  4. OMNISCAN [Suspect]
     Indication: DRUG USE FOR UNKNOWN INDICATION
     Dosage: SEE IMAGE
     Dates: start: 20010410, end: 20010410
  5. OMNISCAN [Suspect]
     Indication: DRUG USE FOR UNKNOWN INDICATION
     Dosage: SEE IMAGE
     Dates: start: 20010417, end: 20010417
  6. MAGNEVIST [Concomitant]
  7. PROHANCE [Concomitant]

REACTIONS (3)
  - DIALYSIS [None]
  - NEPHROGENIC SYSTEMIC FIBROSIS [None]
  - SUDDEN CARDIAC DEATH [None]
